FAERS Safety Report 7974097-6 (Version None)
Quarter: 2011Q4

REPORT INFORMATION
  Report Type: 
  Country: None (occurrence: None)
  Receive Date: 20111213
  Receipt Date: 20111206
  Transmission Date: 20120403
  Serious: Yes (Other)
  Sender: FDA-Public Use
  Company Number: PHHY2011US106548

PATIENT
  Age: 49 Year
  Sex: Male

DRUGS (3)
  1. TRAMADOL HCL [Concomitant]
  2. CLONAZEPAM [Concomitant]
  3. AMLODIPINE [Suspect]
     Dosage: 600 MG, UNK

REACTIONS (10)
  - HYPOXIA [None]
  - PULMONARY OEDEMA [None]
  - NODAL RHYTHM [None]
  - RENAL FAILURE ACUTE [None]
  - OVERDOSE [None]
  - RESPIRATORY FAILURE [None]
  - OLIGURIA [None]
  - BRADYCARDIA [None]
  - HYPOTENSION [None]
  - BRAIN NATRIURETIC PEPTIDE INCREASED [None]
